FAERS Safety Report 5637746-3 (Version None)
Quarter: 2008Q1

REPORT INFORMATION
  Report Type: 
  Country: None (occurrence: None)
  Receive Date: 20080219
  Receipt Date: 20080205
  Transmission Date: 20080703
  Serious: Yes (Hospitalization)
  Sender: FDA-Public Use
  Company Number: 8029433

PATIENT
  Age: 71 Year
  Sex: Female
  Weight: 55.5 kg

DRUGS (12)
  1. KEPPRA [Suspect]
     Indication: CONVULSION
     Dosage: 750 MG 2/D PO
     Route: 048
  2. TEMODAR [Suspect]
     Indication: GLIOBLASTOMA MULTIFORME
     Dosage: PO
     Route: 048
     Dates: start: 20070227
  3. TEMODAR [Suspect]
     Indication: GLIOBLASTOMA MULTIFORME
     Dosage: 120 MG /D PO
     Route: 048
     Dates: start: 20070509, end: 20070530
  4. COMPAZINE [Suspect]
     Indication: NAUSEA
     Dosage: 10 MG PRN PO
     Route: 048
  5. DEXAMETHASONE TAB [Concomitant]
  6. ZOFRAN [Concomitant]
  7. FAMOTIDINE [Concomitant]
  8. ALEVE [Concomitant]
  9. KLOR-CON [Concomitant]
  10. PROCHLORPERAZINE [Concomitant]
  11. SULFAMETHOXAZOLE AND TRIMETHOPRIM DOUBLE STRENGTH [Concomitant]
  12. BACTRIM DS [Concomitant]

REACTIONS (7)
  - FATIGUE [None]
  - HEMIPARESIS [None]
  - HYPOKALAEMIA [None]
  - MEMORY IMPAIRMENT [None]
  - OEDEMA [None]
  - PERIPHERAL MOTOR NEUROPATHY [None]
  - WEIGHT DECREASED [None]
